FAERS Safety Report 5695200-7 (Version None)
Quarter: 2008Q2

REPORT INFORMATION
  Report Type: 
  Country: None (occurrence: None)
  Receive Date: 20080404
  Receipt Date: 20080327
  Transmission Date: 20081010
  Serious: Yes (Other)
  Sender: FDA-Public Use
  Company Number: US-PFIZER INC-2008027574

PATIENT
  Age: 20 Year
  Sex: Male

DRUGS (3)
  1. ZIPRASIDONE (CAPS) [Suspect]
  2. DIVALPROEX SODIUM [Concomitant]
     Dosage: DAILY DOSE:1000MG
  3. TRAZODONE HCL [Concomitant]
     Dosage: DAILY DOSE:100MG

REACTIONS (2)
  - DYSTONIA [None]
  - PLEUROTHOTONUS [None]
